FAERS Safety Report 7385324-0 (Version None)
Quarter: 2011Q1

REPORT INFORMATION
  Report Type: 
  Country: None (occurrence: None)
  Receive Date: 20110330
  Receipt Date: 20100730
  Transmission Date: 20110831
  Serious: No
  Sender: FDA-Public Use
  Company Number: US-MYLANLABS-2010S1013805

PATIENT
  Age: 40 Year
  Sex: Female

DRUGS (2)
  1. EMSAM [Suspect]
     Dosage: Q24H
     Route: 062
     Dates: start: 20100726
  2. EMSAM [Suspect]
     Indication: DEPRESSION
     Dosage: Q24H
     Route: 062
     Dates: start: 20100701, end: 20100723

REACTIONS (1)
  - CHEST PAIN [None]
